FAERS Safety Report 7799175-6 (Version None)
Quarter: 2011Q4

REPORT INFORMATION
  Report Type: 
  Country: None (occurrence: None)
  Receive Date: 20111006
  Receipt Date: 20110927
  Transmission Date: 20120403
  Serious: Yes (Hospitalization)
  Sender: FDA-Public Use
  Company Number: TW-TYCO HEALTHCARE/MALLINCKRODT-T201101938

PATIENT
  Age: 31 Year
  Sex: Female

DRUGS (8)
  1. BUPIVACAINE HCL [Suspect]
     Indication: SPINAL ANAESTHESIA
     Dosage: 11 MG OF 0.5%
     Route: 008
  2. AMPICILLIN SODIUM [Concomitant]
     Indication: PROPHYLAXIS
     Dosage: 2 G, SINGLE
     Route: 042
  3. MORPHINE [Suspect]
     Dosage: 2 MG Q 12 HOURS FOR 3 DAYS
     Route: 008
  4. ROPIVACAINE HYDROCHLORIDE [Suspect]
     Indication: EPIDURAL ANAESTHESIA
     Dosage: CONTINUOUS INFUSION OF 1%
  5. SODIUM CHLORIDE [Suspect]
     Indication: EPIDURAL ANAESTHESIA
     Route: 008
  6. MORPHINE [Suspect]
     Indication: POSTOPERATIVE ANALGESIA
     Dosage: SINGLE 2 MG BOLUS IN 10 ML NORMAL SALINE
     Route: 008
  7. LIDOCAINE [Suspect]
     Indication: LOCAL ANAESTHESIA
     Dosage: 1%
  8. FENTANYL [Suspect]
     Indication: EPIDURAL ANAESTHESIA
     Dosage: CONTINUOUS INFUSION OF 2 UG/ML
     Route: 008

REACTIONS (4)
  - STAPHYLOCOCCAL BACTERAEMIA [None]
  - INJECTION SITE PAPULE [None]
  - PAIN IN EXTREMITY [None]
  - BACK PAIN [None]
